FAERS Safety Report 8032818-0 (Version None)
Quarter: 2012Q1

REPORT INFORMATION
  Report Type: 
  Country: None (occurrence: None)
  Receive Date: 20120110
  Receipt Date: 20120104
  Transmission Date: 20120608
  Serious: Yes (Death)
  Sender: FDA-Public Use
  Company Number: IT-ASTELLAS-2012EU000127

PATIENT
  Age: 64 Year
  Sex: Male

DRUGS (4)
  1. BASILIXIMAB [Concomitant]
     Indication: LIVER TRANSPLANT
     Dosage: 2 MG, UNKNOWN/D
     Route: 042
  2. TACROLIMUS [Suspect]
     Indication: LIVER TRANSPLANT
     Dosage: UNK
     Route: 065
  3. PREDNISONE [Concomitant]
     Indication: LIVER TRANSPLANT
     Dosage: 25 MG, UNKNOWN/D
  4. GANCICLOVIR [Concomitant]
     Indication: PROPHYLAXIS
     Dosage: 5 MG/KG, UNKNOWN/D
     Route: 042

REACTIONS (1)
  - HUMAN HERPESVIRUS 8 INFECTION [None]
